FAERS Safety Report 5397496-8 (Version None)
Quarter: 2007Q3

REPORT INFORMATION
  Report Type: 
  Country: None (occurrence: None)
  Receive Date: 20070726
  Receipt Date: 20070720
  Transmission Date: 20080115
  Serious: Yes (Other)
  Sender: FDA-Public Use
  Company Number: HQWYE191923JUL07

PATIENT
  Age: 76 Year
  Sex: Female

DRUGS (16)
  1. CORDARONE [Suspect]
     Route: 048
     Dates: start: 20070224, end: 20070301
  2. HEPARIN [Concomitant]
     Dosage: UNKNOWN
     Route: 058
  3. EUPANTOL [Concomitant]
     Dosage: UNKNOWN
     Route: 048
  4. MANNITOL [Concomitant]
     Dosage: UNKNOWN
     Route: 042
  5. AUGMENTIN '125' [Concomitant]
  6. CIFLOX [Concomitant]
  7. KARDEGIC [Concomitant]
     Dosage: UNKNOWN
     Route: 048
  8. ATORVASTATIN CALCIUM [Concomitant]
     Dosage: UNKNOWN
     Route: 048
  9. OMACOR [Concomitant]
  10. TAREG [Concomitant]
     Dosage: UNKNOWN
     Route: 048
  11. TENORMIN [Concomitant]
     Dosage: UNKNOWN
     Route: 048
  12. FLECAINIDE ACETATE [Concomitant]
  13. ACTONEL [Concomitant]
     Dosage: UNKNOWN
     Route: 048
  14. CALCIPARINE [Concomitant]
     Dosage: UNKNOWN
     Route: 058
  15. COLECALCIFEROL [Concomitant]
     Dosage: UNKNOWN
     Route: 048
  16. PAROXETINE HCL [Suspect]
     Dosage: 20 MG (FREQUENCY UNSPECIFIED)
     Route: 048
     Dates: start: 20070301, end: 20070301

REACTIONS (1)
  - CARDIAC ARREST [None]
